FAERS Safety Report 6976913-3 (Version None)
Quarter: 2010Q3

REPORT INFORMATION
  Report Type: 
  Country: None (occurrence: None)
  Receive Date: 20100910
  Receipt Date: 20100826
  Transmission Date: 20110219
  Serious: Yes (Death)
  Sender: FDA-Public Use
  Company Number: US-ELI_LILLY_AND_COMPANY-US201008001736

PATIENT
  Sex: Male
  Weight: 91.61 kg

DRUGS (16)
  1. EFFIENT [Suspect]
     Indication: ANTIPLATELET THERAPY
     Dosage: 10 MG, DAILY (1/D)
     Dates: start: 20100616
  2. MAGNEBIND [Concomitant]
     Dosage: 1 D/F, DAILY (1/D)
     Route: 048
  3. POTASSIUM CHLORIDE [Concomitant]
     Dosage: 20 MEQ, 2/D
     Route: 048
  4. ACTOS [Concomitant]
     Dosage: 15 MG, DAILY (1/D)
     Route: 048
  5. COREG [Concomitant]
     Dosage: 6.25 D/F, 2 TABLETS TWICE DAILY
     Route: 048
  6. DIGITEK [Concomitant]
     Dosage: 125 UG, DAILY (1/D)
     Route: 048
  7. JANUVIA [Concomitant]
     Dosage: 100 MG, DAILY (1/D)
     Route: 048
  8. LEVEMIR [Concomitant]
     Dosage: 20 U, EACH EVENING
     Route: 058
  9. ISOSORBIDE [Concomitant]
     Dosage: 20 MG, DAILY (1/D)
     Route: 048
  10. LISINOPRIL [Concomitant]
     Dosage: 10 MG, DAILY (1/D)
     Route: 048
  11. METFORMIN [Concomitant]
     Dosage: 1000 MG, 2/D
     Route: 048
  12. RANITIDINE [Concomitant]
     Dosage: 150 MG, 2/D
     Route: 048
  13. SIMVASTATIN [Concomitant]
     Dosage: 20 MG, EACH EVENING
     Route: 048
  14. METANX [Concomitant]
     Dosage: 1 D/F, 2/D
     Route: 048
  15. BUTAMIDE [Concomitant]
     Dosage: 2 MG, 2 TABLETS FOUR TIMES DAILY
  16. METOLAZONE [Concomitant]
     Dosage: 2.5 MG, DAILY (1/D)
     Route: 048

REACTIONS (6)
  - ATRIAL FIBRILLATION [None]
  - CARDIAC ARREST [None]
  - CARDIAC FAILURE CONGESTIVE [None]
  - CARDIOVASCULAR DISORDER [None]
  - PERIPHERAL VASCULAR DISORDER [None]
  - TYPE 2 DIABETES MELLITUS [None]
